FAERS Safety Report 5964019-1 (Version None)
Quarter: 2008Q4

REPORT INFORMATION
  Report Type: 
  Country: None (occurrence: None)
  Receive Date: 20081124
  Receipt Date: 20081118
  Transmission Date: 20090506
  Serious: Yes (Death)
  Sender: FDA-Public Use
  Company Number: US-TYCO HEALTHCARE/MALLINCKRODT-T200801591

PATIENT

DRUGS (1)
  1. METHADOSE [Suspect]

REACTIONS (4)
  - ASPIRATION [None]
  - BRONCHOPNEUMONIA [None]
  - DRUG DIVERSION [None]
  - DRUG LEVEL INCREASED [None]
